FAERS Safety Report 6730263-9 (Version None)
Quarter: 2010Q2

REPORT INFORMATION
  Report Type: 
  Country: None (occurrence: None)
  Receive Date: 20100518
  Receipt Date: 20100510
  Transmission Date: 20101027
  Serious: Yes (Hospitalization)
  Sender: FDA-Public Use
  Company Number: HU-ROCHE-663527

PATIENT
  Sex: Female
  Weight: 68 kg

DRUGS (10)
  1. BEVACIZUMAB [Suspect]
     Indication: NON-SMALL CELL LUNG CANCER
     Dosage: LAST DOSE PRIOR SAE: 22 SEP 2009 FORM: VIAL. TEMPORARILY INTERRUPTED.
     Route: 042
     Dates: start: 20090714, end: 20091013
  2. BEVACIZUMAB [Suspect]
     Dosage: DRUG RESTARTED
     Route: 042
     Dates: start: 20091027
  3. PACLITAXEL [Suspect]
     Indication: NON-SMALL CELL LUNG CANCER
     Dosage: LAST DOSE PRIOR SAE: 22 SEP 2009 FORM: VIAL
     Route: 042
     Dates: start: 20090714, end: 20090922
  4. PACLITAXEL [Suspect]
     Dosage: TEMPORARILY INTERRUPTED.
     Route: 042
     Dates: start: 20090922, end: 20091013
  5. PACLITAXEL [Suspect]
     Dosage: DRUG PERMANENTLY DISCONTINUED.
     Route: 042
     Dates: end: 20091027
  6. CARBOPLATIN [Suspect]
     Indication: NON-SMALL CELL LUNG CANCER
     Dosage: LAST DOSE PRIOR SAE:22 SEP 2009. FORM:VIAL
     Route: 042
     Dates: start: 20090724, end: 20090922
  7. CARBOPLATIN [Suspect]
     Dosage: DOSE REDUCED
     Route: 042
     Dates: start: 20090922, end: 20091013
  8. CARBOPLATIN [Suspect]
     Dosage: THERAPY PERMANENTLY DISCONTINUED.
     Route: 042
     Dates: end: 20091027
  9. ALLOPURINOL [Concomitant]
     Dates: start: 19990101
  10. DONALGIN [Concomitant]
     Dosage: AS NEEDED
     Dates: start: 20081201

REACTIONS (1)
  - NEUROPATHY PERIPHERAL [None]
